FAERS Safety Report 8493246-7 (Version None)
Quarter: 2012Q3

REPORT INFORMATION
  Report Type: 
  Country: None (occurrence: None)
  Receive Date: 20120706
  Receipt Date: 20120702
  Transmission Date: 20120928
  Serious: Yes (Other)
  Sender: FDA-Public Use
  Company Number: ES-JNJFOC-20120701487

PATIENT
  Age: 3 Year
  Sex: Female
  Weight: 21 kg

DRUGS (1)
  1. MEBENDAZOLE [Suspect]
     Indication: PRODUCT USED FOR UNKNOWN INDICATION
     Route: 048
     Dates: start: 20120316

REACTIONS (1)
  - HALLUCINATION [None]
